FAERS Safety Report 20384563 (Version 1)
Quarter: 2022Q1

REPORT INFORMATION
  Report Type: Spontaneous
  Country: US (occurrence: None)
  Receive Date: 20220127
  Receipt Date: 20220127
  Transmission Date: 20220423
  Serious: No
  Sender: FDA-Public Use
  Company Number: None

PATIENT
  Age: 83 Year
  Sex: Male

DRUGS (1)
  1. CAPECITABINE [Suspect]
     Active Substance: CAPECITABINE
     Indication: Colon cancer
     Dosage: 1500 MG BID ORAL?
     Route: 048
     Dates: start: 2021

REACTIONS (7)
  - Infusion related reaction [None]
  - Fatigue [None]
  - Skin haemorrhage [None]
  - Skin abrasion [None]
  - Rash macular [None]
  - Skin discolouration [None]
  - Red blood cell count decreased [None]

NARRATIVE: CASE EVENT DATE: 20220124
